FAERS Safety Report 24415000 (Version 4)
Quarter: 2024Q4

REPORT INFORMATION
  Report Type: Report from Study
  Country: US (occurrence: US)
  Receive Date: 20241009
  Receipt Date: 20241212
  Transmission Date: 20250115
  Serious: No
  Sender: ACADIA PHARMACEUTICALS
  Company Number: US-ACADIA PHARMACEUTICALS INC.-ACA-2024-TRF-005943

PATIENT
  Sex: Female

DRUGS (3)
  1. DAYBUE [Suspect]
     Active Substance: TROFINETIDE
     Indication: Rett syndrome
     Dosage: 10 MILLILITER, IN THE MORNING
     Route: 048
     Dates: start: 20240914
  2. DAYBUE [Suspect]
     Active Substance: TROFINETIDE
     Dosage: 15 ML IN THE MORNING
     Route: 048
     Dates: end: 20241105
  3. NALTREXONE [Suspect]
     Active Substance: NALTREXONE

REACTIONS (8)
  - Hyperhidrosis [Unknown]
  - Mydriasis [Unknown]
  - Psychomotor hyperactivity [Unknown]
  - Drooling [Recovered/Resolved]
  - Underdose [Not Recovered/Not Resolved]
  - Inappropriate schedule of product administration [Not Recovered/Not Resolved]
  - Psychomotor hyperactivity [Not Recovered/Not Resolved]
  - Drug interaction [Not Recovered/Not Resolved]
